FAERS Safety Report 8243838-5 (Version None)
Quarter: 2012Q1

REPORT INFORMATION
  Report Type: 
  Country: None (occurrence: None)
  Receive Date: 20120329
  Receipt Date: 20120321
  Transmission Date: 20120608
  Serious: Yes (Hospitalization)
  Sender: FDA-Public Use
  Company Number: US-PFIZER INC-2012074575

PATIENT
  Sex: Female
  Weight: 105.22 kg

DRUGS (10)
  1. METHYLPREDNISOLONE [Suspect]
     Indication: BRONCHITIS
     Dosage: 4 MG, UNK
     Route: 048
     Dates: start: 20120112, end: 20120101
  2. CELESTAMINE TAB [Concomitant]
     Indication: BLOOD CHOLESTEROL INCREASED
     Dosage: UNK
  3. CELESTAMINE TAB [Concomitant]
     Indication: DIARRHOEA
  4. OXYGEN [Concomitant]
     Dosage: AT NIGHT
  5. ASPIRIN [Concomitant]
     Dosage: 81 MG, UNK
     Route: 048
  6. ZITHROMAX [Concomitant]
     Indication: BRONCHITIS
     Dosage: UNK
     Route: 042
     Dates: start: 20120110
  7. ALBUTEROL [Concomitant]
     Indication: BRONCHITIS
     Dosage: UNK
     Route: 055
  8. MEDROL [Suspect]
     Indication: BRONCHITIS
     Dosage: ONCE, INJECTION
     Dates: start: 20120110, end: 20120110
  9. ZANTAC [Concomitant]
     Indication: ABDOMINAL DISCOMFORT
     Dosage: UNK
  10. VITAMIN TAB [Concomitant]

REACTIONS (5)
  - FEELING ABNORMAL [None]
  - CEREBROVASCULAR ACCIDENT [None]
  - TRANSIENT ISCHAEMIC ATTACK [None]
  - ANXIETY [None]
  - GAIT DISTURBANCE [None]
